FAERS Safety Report 21254869 (Version 2)
Quarter: 2022Q4

REPORT INFORMATION
  Report Type: Spontaneous
  Country: CA (occurrence: CA)
  Receive Date: 20220825
  Receipt Date: 20221214
  Transmission Date: 20230112
  Serious: Yes (Hospitalization, Other)
  Sender: FDA-Public Use
  Company Number: CA-TAKEDA-2022TUS057957

PATIENT
  Age: 30 Year
  Sex: Female
  Weight: 60 kg

DRUGS (20)
  1. HUMAN C1-ESTERASE INHIBITOR [Suspect]
     Active Substance: HUMAN C1-ESTERASE INHIBITOR
     Indication: Prophylaxis
     Dosage: 3000 INTERNATIONAL UNIT
     Route: 042
  2. HUMAN C1-ESTERASE INHIBITOR [Suspect]
     Active Substance: HUMAN C1-ESTERASE INHIBITOR
     Indication: Prophylaxis
     Dosage: 3000 INTERNATIONAL UNIT
     Route: 042
  3. HUMAN C1-ESTERASE INHIBITOR [Suspect]
     Active Substance: HUMAN C1-ESTERASE INHIBITOR
     Indication: Prophylaxis
     Dosage: 3000 INTERNATIONAL UNIT
     Route: 042
  4. HUMAN C1-ESTERASE INHIBITOR [Suspect]
     Active Substance: HUMAN C1-ESTERASE INHIBITOR
     Indication: Hereditary angioedema
     Dosage: 4500 INTERNATIONAL UNIT, QD
     Route: 042
  5. HUMAN C1-ESTERASE INHIBITOR [Suspect]
     Active Substance: HUMAN C1-ESTERASE INHIBITOR
     Indication: Hereditary angioedema
     Dosage: 4500 INTERNATIONAL UNIT, QD
     Route: 042
  6. HUMAN C1-ESTERASE INHIBITOR [Suspect]
     Active Substance: HUMAN C1-ESTERASE INHIBITOR
     Indication: Hereditary angioedema
     Dosage: 4500 INTERNATIONAL UNIT, QD
     Route: 042
  7. HUMAN C1-ESTERASE INHIBITOR [Suspect]
     Active Substance: HUMAN C1-ESTERASE INHIBITOR
     Dosage: 3000 INTERNATIONAL UNIT, QD
     Route: 065
  8. HUMAN C1-ESTERASE INHIBITOR [Suspect]
     Active Substance: HUMAN C1-ESTERASE INHIBITOR
     Dosage: 3000 INTERNATIONAL UNIT, QD
     Route: 065
  9. HUMAN C1-ESTERASE INHIBITOR [Suspect]
     Active Substance: HUMAN C1-ESTERASE INHIBITOR
     Dosage: 3000 INTERNATIONAL UNIT, QD
     Route: 065
  10. HUMAN C1-ESTERASE INHIBITOR [Suspect]
     Active Substance: HUMAN C1-ESTERASE INHIBITOR
     Dosage: 3000 INTERNATIONAL UNIT, QD
     Route: 065
     Dates: start: 20140514
  11. HUMAN C1-ESTERASE INHIBITOR [Suspect]
     Active Substance: HUMAN C1-ESTERASE INHIBITOR
     Dosage: 3000 INTERNATIONAL UNIT, QD
     Route: 065
     Dates: start: 20140514
  12. HUMAN C1-ESTERASE INHIBITOR [Suspect]
     Active Substance: HUMAN C1-ESTERASE INHIBITOR
     Dosage: 3000 INTERNATIONAL UNIT, QD
     Route: 065
     Dates: start: 20140514
  13. HUMAN C1-ESTERASE INHIBITOR [Suspect]
     Active Substance: HUMAN C1-ESTERASE INHIBITOR
     Dosage: 4500 INTERNATIONAL UNIT, QD
     Route: 042
     Dates: start: 20220405
  14. HUMAN C1-ESTERASE INHIBITOR [Suspect]
     Active Substance: HUMAN C1-ESTERASE INHIBITOR
     Dosage: 4500 INTERNATIONAL UNIT, QD
     Route: 042
     Dates: start: 20220405
  15. HUMAN C1-ESTERASE INHIBITOR [Suspect]
     Active Substance: HUMAN C1-ESTERASE INHIBITOR
     Dosage: 4500 INTERNATIONAL UNIT, QD
     Route: 042
     Dates: start: 20220405
  16. BERINERT [Suspect]
     Active Substance: HUMAN C1-ESTERASE INHIBITOR
     Indication: Hereditary angioedema
     Dosage: UNK
     Route: 065
  17. FYCOMPA [Concomitant]
     Active Substance: PERAMPANEL
  18. AMITRIPTYLINE HYDROCHLORIDE [Concomitant]
     Active Substance: AMITRIPTYLINE HYDROCHLORIDE
  19. SYNTHROID [Concomitant]
     Active Substance: LEVOTHYROXINE SODIUM
  20. ZOFRAN [Concomitant]
     Active Substance: ONDANSETRON HYDROCHLORIDE

REACTIONS (9)
  - Hereditary angioedema [Recovered/Resolved]
  - Abdominal distension [Not Recovered/Not Resolved]
  - Poor venous access [Recovering/Resolving]
  - Therapeutic product effect incomplete [Not Recovered/Not Resolved]
  - Throat tightness [Recovering/Resolving]
  - Vomiting [Not Recovered/Not Resolved]
  - Off label use [Not Recovered/Not Resolved]
  - Drug hypersensitivity [Unknown]
  - Fatigue [Unknown]

NARRATIVE: CASE EVENT DATE: 20220319
